FAERS Safety Report 14335601 (Version 1)
Quarter: 2017Q4

REPORT INFORMATION
  Report Type: Spontaneous
  Country: US (occurrence: US)
  Receive Date: 20171229
  Receipt Date: 20171229
  Transmission Date: 20180321
  Serious: Yes (Other)
  Sender: FDA-Public Use
  Company Number: US-TEVA-2017-US-837897

PATIENT
  Age: 29 Year
  Sex: Female
  Weight: 58 kg

DRUGS (1)
  1. PARAGARD T 380A [Suspect]
     Active Substance: COPPER
     Indication: CONTRACEPTION
     Dates: start: 201602

REACTIONS (3)
  - Amenorrhoea [Not Recovered/Not Resolved]
  - Device dislocation [Not Recovered/Not Resolved]
  - Discomfort [Unknown]

NARRATIVE: CASE EVENT DATE: 20171208
